FAERS Safety Report 6613944-7 (Version None)
Quarter: 2010Q1

REPORT INFORMATION
  Report Type: 
  Country: None (occurrence: None)
  Receive Date: 20100304
  Receipt Date: 20100224
  Transmission Date: 20100710
  Serious: Yes (Hospitalization)
  Sender: FDA-Public Use
  Company Number: B0637078A

PATIENT
  Sex: Male
  Weight: 80 kg

DRUGS (3)
  1. LAPATINIB [Suspect]
     Indication: BREAST CANCER
     Dosage: 1000MG PER DAY
     Route: 048
     Dates: start: 20100215, end: 20100224
  2. CYCLOPHOSPHAMIDE [Suspect]
     Indication: BREAST CANCER
     Dosage: 600MGM2 EVERY 3 WEEKS
     Route: 042
     Dates: start: 20100215, end: 20100224
  3. EPIRUBICIN [Suspect]
     Indication: BREAST CANCER
     Dosage: 90MGM2 EVERY 3 WEEKS
     Route: 042
     Dates: start: 20100215, end: 20100224

REACTIONS (3)
  - CIRCULATORY COLLAPSE [None]
  - LEUKOPENIA [None]
  - PYREXIA [None]
